FAERS Safety Report 23157759 (Version 1)
Quarter: 2023Q4

REPORT INFORMATION
  Report Type: Spontaneous
  Country: FR (occurrence: FR)
  Receive Date: 20231108
  Receipt Date: 20231108
  Transmission Date: 20240110
  Serious: Yes (Hospitalization)
  Sender: FDA-Public Use
  Company Number: None

PATIENT
  Age: 48 Year
  Sex: Male
  Weight: 79 kg

DRUGS (14)
  1. OBINUTUZUMAB [Suspect]
     Active Substance: OBINUTUZUMAB
     Indication: Systemic lupus erythematosus
     Route: 042
     Dates: start: 20231005, end: 20231005
  2. DOLIPRANE [Suspect]
     Active Substance: ACETAMINOPHEN
     Indication: Headache
     Route: 065
     Dates: start: 20231007, end: 20231009
  3. CALCIDOSE 500 [Concomitant]
  4. RAMIPRIL [Concomitant]
     Active Substance: RAMIPRIL
  5. ELIQUIS [Concomitant]
     Active Substance: APIXABAN
  6. BARACLUDE [Concomitant]
     Active Substance: ENTECAVIR
  7. LEVOTHYROXINE [Concomitant]
     Active Substance: LEVOTHYROXINE
  8. PLAQUENIL [Concomitant]
     Active Substance: HYDROXYCHLOROQUINE SULFATE
  9. COLCHICINE [Concomitant]
     Active Substance: COLCHICINE
  10. RIMIFON [Concomitant]
     Active Substance: ISONIAZID
  11. PREDNISONE [Concomitant]
     Active Substance: PREDNISONE
  12. CHOLECALCIFEROL [Concomitant]
     Active Substance: CHOLECALCIFEROL
  13. CELLCEPT [Concomitant]
     Active Substance: MYCOPHENOLATE MOFETIL
  14. LANSOPRAZOLE [Concomitant]
     Active Substance: LANSOPRAZOLE

REACTIONS (1)
  - Hepatic cytolysis [Recovered/Resolved]

NARRATIVE: CASE EVENT DATE: 20231009
